FAERS Safety Report 8598988-0 (Version None)
Quarter: 2012Q3

REPORT INFORMATION
  Report Type: 
  Country: None (occurrence: None)
  Receive Date: 20120816
  Receipt Date: 20120807
  Transmission Date: 20120928
  Serious: Yes (Other)
  Sender: FDA-Public Use
  Company Number: US-BRISTOL-MYERS SQUIBB COMPANY-15615214

PATIENT
  Age: 65 Year
  Sex: Male

DRUGS (13)
  1. DEXAMETHASONE [Concomitant]
     Dates: start: 20100501
  2. XANAX [Concomitant]
     Dosage: 1/2-1 TID
  3. COLACE [Concomitant]
     Dosage: 1DF=1 UNIT NOT MENTIONED
  4. COUMADIN [Suspect]
     Dosage: 2.5 MG,STR ON UNK DATE-INTRP ON 27FEB11
  5. COREG [Concomitant]
  6. ZOLOFT [Concomitant]
  7. PHOSLO [Concomitant]
  8. REVLIMID [Suspect]
     Indication: AMYLOIDOSIS
     Dosage: 15JAN11-UNK,10MG,21IN21 D FEB11--24FEB11,15MG,1IN1D 07JUN-30JUN11,10MG,1IN1D AUG11-UN,5MG,21IN21D
     Route: 048
     Dates: start: 20110101
  9. CARDURA [Concomitant]
  10. ARMODAFINIL [Suspect]
     Dates: start: 20100501
  11. LASIX [Concomitant]
  12. CRESTOR [Concomitant]
  13. HYDRALAZINE HCL [Concomitant]

REACTIONS (1)
  - THROMBOCYTOPENIA [None]
